FAERS Safety Report 5720151-9 (Version None)
Quarter: 2008Q2

REPORT INFORMATION
  Report Type: 
  Country: None (occurrence: None)
  Receive Date: 20080428
  Receipt Date: 20080424
  Transmission Date: 20081010
  Serious: Yes (Other)
  Sender: FDA-Public Use
  Company Number: FR-ABBOTT-08P-056-0441781-00

PATIENT
  Age: 57 Year
  Sex: Female

DRUGS (7)
  1. ADALIMUMAB [Suspect]
     Indication: RHEUMATOID ARTHRITIS
     Route: 058
     Dates: start: 20040401, end: 20050501
  2. PULSE METHYLPREDNISOLONE [Concomitant]
     Indication: RHEUMATOID ARTHRITIS
     Dosage: NOT REPORTED
     Dates: start: 20031001
  3. PREDNISONE [Concomitant]
     Indication: RHEUMATOID ARTHRITIS
     Dates: start: 20031001, end: 20031201
  4. PREDNISONE [Concomitant]
     Dates: start: 20050801
  5. PREDNISONE [Concomitant]
     Dates: start: 20060301
  6. PREDNISONE [Concomitant]
     Dosage: NOT REPORTED
     Dates: start: 20060601
  7. METHOTREXATE [Concomitant]
     Indication: RHEUMATOID ARTHRITIS
     Route: 058
     Dates: start: 20031001, end: 20050501

REACTIONS (3)
  - POLYARTHRITIS [None]
  - POLYMYOSITIS [None]
  - SCLERODERMA [None]
